FAERS Safety Report 16018237 (Version 2)
Quarter: 2019Q1

REPORT INFORMATION
  Report Type: Spontaneous
  Country: IT (occurrence: IT)
  Receive Date: 20190228
  Receipt Date: 20190301
  Transmission Date: 20190418
  Serious: Yes (Hospitalization)
  Sender: FDA-Public Use
  Company Number: IT-JNJFOC-20190232146

PATIENT
  Age: 79 Year
  Sex: Female

DRUGS (11)
  1. RETACRIT [Concomitant]
     Active Substance: EPOETIN ALFA-EPBX
     Route: 058
  2. CARDURA [Concomitant]
     Active Substance: DOXAZOSIN MESYLATE
     Route: 048
  3. LASIX [Suspect]
     Active Substance: FUROSEMIDE
     Indication: GRAVITATIONAL OEDEMA
     Route: 048
     Dates: start: 20190107, end: 20190123
  4. BISOPROLOLO [Concomitant]
     Active Substance: BISOPROLOL FUMARATE
     Route: 048
  5. DUROGESIC [Suspect]
     Active Substance: FENTANYL
     Indication: BACK PAIN
     Route: 062
     Dates: start: 20190121, end: 20190123
  6. ZAROXOLYN [Suspect]
     Active Substance: METOLAZONE
     Indication: GRAVITATIONAL OEDEMA
     Route: 048
     Dates: start: 20190107, end: 20190123
  7. CRESTOR [Concomitant]
     Active Substance: ROSUVASTATIN CALCIUM
     Route: 048
  8. SPIRONOLACTONE. [Concomitant]
     Active Substance: SPIRONOLACTONE
     Route: 048
  9. AMLODIPINE BESILATE [Concomitant]
     Active Substance: AMLODIPINE BESYLATE
     Route: 048
  10. ADENURIC [Suspect]
     Active Substance: FEBUXOSTAT
     Indication: GRAVITATIONAL OEDEMA
     Route: 048
     Dates: start: 20190107, end: 20190123
  11. COUMADIN [Concomitant]
     Active Substance: WARFARIN SODIUM
     Route: 048

REACTIONS (4)
  - Hyponatraemia [Recovered/Resolved]
  - Hypokalaemia [Recovered/Resolved]
  - Asthenia [Recovered/Resolved]
  - Sopor [Recovered/Resolved]

NARRATIVE: CASE EVENT DATE: 20190123
